FAERS Safety Report 6534841-1 (Version None)
Quarter: 2010Q1

REPORT INFORMATION
  Report Type: 
  Country: None (occurrence: None)
  Receive Date: 20100112
  Receipt Date: 20100106
  Transmission Date: 20100710
  Serious: Yes (Hospitalization)
  Sender: FDA-Public Use
  Company Number: PHHY2009JP59137

PATIENT
  Sex: Male

DRUGS (1)
  1. COMTAN [Suspect]
     Indication: PARKINSON'S DISEASE

REACTIONS (1)
  - THROMBOCYTOPENIA [None]
